FAERS Safety Report 6282286-4 (Version None)
Quarter: 2009Q3

REPORT INFORMATION
  Report Type: 
  Country: None (occurrence: None)
  Receive Date: 20090722
  Receipt Date: 20090722
  Transmission Date: 20100115
  Serious: Yes (Hospitalization)
  Sender: FDA-Public Use
  Company Number: None

PATIENT
  Age: 65 Year
  Sex: Male
  Weight: 133.8 kg

DRUGS (2)
  1. MORPHINE [Suspect]
     Indication: PAIN
     Dosage: 2 MG Q2HR-PRN IV, 1 DOSE
     Route: 042
  2. HYDROMORPHONE HCL [Suspect]
     Indication: PAIN
     Dosage: 2 MG PRN IV 1 DOSE
     Route: 042

REACTIONS (3)
  - ACUTE RESPIRATORY FAILURE [None]
  - SLEEP APNOEA SYNDROME [None]
  - UNRESPONSIVE TO STIMULI [None]
